FAERS Safety Report 20576721 (Version 2)
Quarter: 2022Q1

REPORT INFORMATION
  Report Type: Spontaneous
  Country: JP (occurrence: JP)
  Receive Date: 20220310
  Receipt Date: 20220323
  Transmission Date: 20220423
  Serious: Yes (Death, Other)
  Sender: FDA-Public Use
  Company Number: JP-TEVA-2022-JP-2014036

PATIENT
  Age: 76 Year
  Sex: Male

DRUGS (7)
  1. CARBOPLATIN [Suspect]
     Active Substance: CARBOPLATIN
     Indication: Biphasic mesothelioma
     Dosage: RECEIVED FOR THREE CYCLES
     Route: 065
  2. CISPLATIN [Suspect]
     Active Substance: CISPLATIN
     Indication: Biphasic mesothelioma
     Dosage: RECEIVED FOR THREE CYCLES
     Route: 065
  3. PEMETREXED [Suspect]
     Active Substance: PEMETREXED
     Indication: Biphasic mesothelioma
     Dosage: RECEIVED FOR THREE CYCLES WITH CISPLATIN
     Route: 065
  4. PEMETREXED [Suspect]
     Active Substance: PEMETREXED
     Dosage: RECEIVED FOR THREE CYCLES WITH CARBOPLATIN
     Route: 065
  5. PEMETREXED [Suspect]
     Active Substance: PEMETREXED
     Dosage: RECEIVED FOR 27 CYCLES ALONE
     Route: 065
  6. GEMCITABINE [Suspect]
     Active Substance: GEMCITABINE
     Indication: Biphasic mesothelioma
     Dosage: RECEIVED FOR TWO CYCLES
     Route: 065
  7. NIVOLUMAB [Suspect]
     Active Substance: NIVOLUMAB
     Indication: Biphasic mesothelioma
     Dosage: 240 MG/BODY EVERY TWO WEEKS
     Route: 042

REACTIONS (2)
  - Drug-induced liver injury [Fatal]
  - Drug ineffective [Unknown]
